FAERS Safety Report 9361226 (Version 1)
Quarter: 2013Q2

REPORT INFORMATION
  Report Type: Spontaneous
  Country: US (occurrence: US)
  Receive Date: 20130621
  Receipt Date: 20130621
  Transmission Date: 20140414
  Serious: Yes (Death, Hospitalization, Other)
  Sender: FDA-Public Use
  Company Number: US-CUBIST PHARMACEUTICAL, INC.-2010US000053

PATIENT
  Age: 29 Year
  Sex: Male
  Weight: 90.72 kg

DRUGS (2)
  1. ENTEREG [Suspect]
     Indication: GASTROINTESTINAL SURGERY
     Dosage: 12 MG, UNK
     Route: 048
     Dates: start: 20100827, end: 20100827
  2. OXYCONTIN [Concomitant]
     Indication: PAIN
     Dosage: 30 MG, TID
     Route: 048

REACTIONS (6)
  - Renal failure [Recovered/Resolved]
  - Withdrawal syndrome [Recovered/Resolved]
  - Chills [Recovered/Resolved]
  - Gastrointestinal stoma complication [Recovered/Resolved]
  - Abdominal pain [Recovered/Resolved]
  - Abdominal pain [Recovered/Resolved]
